FAERS Safety Report 14063473 (Version 3)
Quarter: 2018Q1

REPORT INFORMATION
  Report Type: Report from Study
  Country: IL (occurrence: IL)
  Receive Date: 20171009
  Receipt Date: 20180106
  Transmission Date: 20180508
  Serious: Yes (Other)
  Sender: FDA-Public Use
  Company Number: IL-AMGEN-ISRSL2017150879

PATIENT
  Age: 69 Year
  Sex: Female

DRUGS (1)
  1. PROLIA [Suspect]
     Active Substance: DENOSUMAB
     Indication: OSTEOPOROSIS
     Dosage: Q6MO
     Route: 065
     Dates: start: 20150228

REACTIONS (5)
  - Pulpitis dental [Unknown]
  - Back pain [Unknown]
  - Bone loss [Unknown]
  - Gingivitis [Unknown]
  - Toothache [Unknown]

NARRATIVE: CASE EVENT DATE: 2016
